FAERS Safety Report 21774604 (Version 2)
Quarter: 2023Q1

REPORT INFORMATION
  Report Type: Report from Study
  Country: NL (occurrence: NL)
  Receive Date: 20221224
  Receipt Date: 20230106
  Transmission Date: 20230417
  Serious: Yes (Death)
  Sender: FDA-Public Use
  Company Number: NL-VER-202200147

PATIENT
  Age: 56 Year
  Sex: Male

DRUGS (3)
  1. TRIPTORELIN PAMOATE [Suspect]
     Active Substance: TRIPTORELIN PAMOATE
     Indication: Product used for unknown indication
     Dosage: 1.00 X PER 24 WEKEN, PAMORELIN DEPOT
     Route: 030
     Dates: start: 20210723, end: 20210723
  2. TRIPTORELIN PAMOATE [Suspect]
     Active Substance: TRIPTORELIN PAMOATE
     Indication: Product used for unknown indication
     Dosage: 1.00 X PER 24 WEKEN, PAMORELIN DEPOT INJPDR 22.5MG SOLV 2ML (1ST) (1 IN 6 M)
     Route: 030
     Dates: start: 20220105, end: 20220105
  3. TRIPTORELIN PAMOATE [Suspect]
     Active Substance: TRIPTORELIN PAMOATE
     Indication: Product used for unknown indication
     Dosage: ??1.00 X PER 24 WEKEN, PAMORELIN DEPOT INJPDR 22.5MG SOLV 2ML (1ST) (1 IN 6 M)
     Route: 030
     Dates: start: 20220622, end: 20220622

REACTIONS (1)
  - Death [Fatal]

NARRATIVE: CASE EVENT DATE: 20220725
